FAERS Safety Report 19574680 (Version 1)
Quarter: 2021Q3

REPORT INFORMATION
  Report Type: Spontaneous
  Country: US (occurrence: US)
  Receive Date: 20210719
  Receipt Date: 20210719
  Transmission Date: 20211014
  Serious: Yes (Other)
  Sender: FDA-Public Use
  Company Number: US-SA-2021SA231046

PATIENT
  Age: 22 Year
  Sex: Female

DRUGS (7)
  1. CERDELGA [Suspect]
     Active Substance: ELIGLUSTAT
     Indication: GAUCHER^S DISEASE
     Dosage: 84 MG, Q12H
     Route: 065
     Dates: start: 20200531
  2. PRAZOSIN. [Concomitant]
     Active Substance: PRAZOSIN
  3. ABILIFY [Concomitant]
     Active Substance: ARIPIPRAZOLE
  4. VENTOLINE [SALBUTAMOL] [Concomitant]
     Active Substance: ALBUTEROL SULFATE
  5. DOXEPIN [Concomitant]
     Active Substance: DOXEPIN
  6. BACLOFEN. [Concomitant]
     Active Substance: BACLOFEN
  7. ONDANSETRON [Concomitant]
     Active Substance: ONDANSETRON

REACTIONS (1)
  - Suicidal ideation [Unknown]
